FAERS Safety Report 4634544-4 (Version None)
Quarter: 2005Q2

REPORT INFORMATION
  Report Type: 
  Country: None (occurrence: None)
  Receive Date: 20050411
  Receipt Date: 20050328
  Transmission Date: 20051028
  Serious: Yes (Other)
  Sender: FDA-Public Use
  Company Number: 200510816GDS

PATIENT
  Age: 56 Year
  Sex: Female
  Weight: 50 kg

DRUGS (3)
  1. ASPIRIN [Suspect]
     Indication: CEREBRAL ISCHAEMIA
     Dosage: 100 MG , QD, ORAL
     Route: 048
     Dates: start: 20050227, end: 20050327
  2. VASODILATORS (NOS) [Concomitant]
  3. TIAN SHU CAPSULE (CHINESE MEDICINE0 [Concomitant]

REACTIONS (2)
  - DEAFNESS NEUROSENSORY [None]
  - TINNITUS [None]
